FAERS Safety Report 4869201-2 (Version None)
Quarter: 2005Q4

REPORT INFORMATION
  Report Type: 
  Country: None (occurrence: None)
  Receive Date: 20051228
  Receipt Date: 20051228
  Transmission Date: 20060501
  Serious: Yes (Life-Threatening)
  Sender: FDA-Public Use
  Company Number: None

PATIENT
  Age: 73 Year
  Sex: Female

DRUGS (2)
  1. RHYTHMOL   600 MG [Suspect]
     Dosage: 600 MG     PO
     Route: 048
     Dates: start: 20051224, end: 20051224
  2. CARDIZEM [Concomitant]

REACTIONS (2)
  - ARRHYTHMIA [None]
  - HYPOTENSION [None]
